FAERS Safety Report 7384417-1 (Version None)
Quarter: 2011Q1

REPORT INFORMATION
  Report Type: 
  Country: None (occurrence: None)
  Receive Date: 20110330
  Receipt Date: 20110320
  Transmission Date: 20110831
  Serious: Yes (Hospitalization, Other)
  Sender: FDA-Public Use
  Company Number: IL-ACTELION-A-CH2011-45476

PATIENT
  Age: 5 Month
  Sex: Female

DRUGS (3)
  1. TRACLEER [Suspect]
     Indication: PULMONARY ARTERIAL HYPERTENSION
     Dosage: UNK
     Route: 048
     Dates: start: 20101101
  2. DIURETICS [Concomitant]
     Dosage: UNK
  3. REVATIO [Concomitant]

REACTIONS (3)
  - CONDITION AGGRAVATED [None]
  - RESPIRATORY TRACT INFECTION [None]
  - PULMONARY ARTERIAL HYPERTENSION [None]
